FAERS Safety Report 4458012-8 (Version None)
Quarter: 2004Q3

REPORT INFORMATION
  Report Type: 
  Country: None (occurrence: None)
  Receive Date: 20040924
  Receipt Date: 20040915
  Transmission Date: 20050211
  Serious: Yes (Other)
  Sender: FDA-Public Use
  Company Number: PHBS2004CA12224

PATIENT
  Age: 38 Year
  Sex: Female

DRUGS (9)
  1. ZELNORM [Suspect]
     Dosage: 6 MG, BID
     Route: 048
  2. ZELNORM [Suspect]
     Dosage: 9 MG/DAY
     Route: 048
  3. CYTOTEC [Concomitant]
  4. NEURONTIN [Concomitant]
  5. ACYCLOVIR [Concomitant]
  6. DILANTIN [Concomitant]
  7. LOSEC [Concomitant]
  8. RESTORIL [Concomitant]
  9. GRAVOL TAB [Concomitant]

REACTIONS (3)
  - FLATULENCE [None]
  - HAEMATOCHEZIA [None]
  - STOOLS WATERY [None]
